FAERS Safety Report 7932054-X (Version None)
Quarter: 2011Q4

REPORT INFORMATION
  Report Type: 
  Country: None (occurrence: None)
  Receive Date: 20111121
  Receipt Date: 20110824
  Transmission Date: 20120403
  Serious: No
  Sender: FDA-Public Use
  Company Number: US-BAYER-2011-080665

PATIENT

DRUGS (2)
  1. ALEVE (CAPLET) [Suspect]
     Indication: ARTHRALGIA
  2. ALEVE (CAPLET) [Suspect]
     Indication: MUSCULOSKELETAL PAIN

REACTIONS (2)
  - MUSCULOSKELETAL PAIN [None]
  - ARTHRALGIA [None]
